FAERS Safety Report 20532114 (Version 1)
Quarter: 2022Q1

REPORT INFORMATION
  Report Type: Spontaneous
  Country: US (occurrence: None)
  Receive Date: 20220301
  Receipt Date: 20220301
  Transmission Date: 20220424
  Serious: Yes (Hospitalization)
  Sender: FDA-Public Use
  Company Number: None

PATIENT
  Sex: Female
  Weight: 65.2 kg

DRUGS (5)
  1. CYCLOPHOSPHAMIDE [Suspect]
     Active Substance: CYCLOPHOSPHAMIDE
  2. CYTARABINE [Concomitant]
     Active Substance: CYTARABINE
  3. MERCAPTOPURINE [Concomitant]
     Active Substance: MERCAPTOPURINE
  4. ONCASPAR [Concomitant]
     Active Substance: PEGASPARGASE
  5. VINCRISTINE SULFATE [Concomitant]
     Active Substance: VINCRISTINE SULFATE

REACTIONS (10)
  - Pyrexia [None]
  - Abdominal pain [None]
  - Vomiting [None]
  - Pleural effusion [None]
  - Pneumonia [None]
  - Empyema [None]
  - Stoma site discharge [None]
  - Flatulence [None]
  - Stoma site thrombosis [None]
  - Platelet count decreased [None]

NARRATIVE: CASE EVENT DATE: 20220225
